FAERS Safety Report 4876660-8 (Version None)
Quarter: 2006Q1

REPORT INFORMATION
  Report Type: 
  Country: None (occurrence: None)
  Receive Date: 20060110
  Receipt Date: 20030605
  Transmission Date: 20060701
  Serious: Yes (Hospitalization, Other)
  Sender: FDA-Public Use
  Company Number: US-MERCK-0306USA00656

PATIENT
  Age: 39 Year
  Sex: Female
  Weight: 63 kg

DRUGS (13)
  1. VIOXX [Suspect]
     Indication: ARTHRALGIA
     Route: 048
     Dates: start: 19990915, end: 20010812
  2. LORTAB [Concomitant]
     Route: 065
  3. PREDNISONE [Concomitant]
     Route: 065
  4. PREDNISONE [Concomitant]
     Route: 065
  5. NITROPASTE [Concomitant]
     Route: 065
  6. SODIUM FOLATE [Concomitant]
     Route: 065
  7. ULTRAM [Concomitant]
     Route: 065
  8. TRIAMCINOLONE [Concomitant]
     Route: 065
  9. SKELAXIN [Concomitant]
     Route: 065
  10. METHOTREXATE [Concomitant]
     Route: 065
  11. FOLIC ACID [Concomitant]
     Route: 065
  12. TOPROL-XL [Concomitant]
     Route: 065
  13. ELAVIL [Concomitant]
     Route: 065

REACTIONS (39)
  - ACUTE MYOCARDIAL INFARCTION [None]
  - ADVERSE EVENT [None]
  - AMNESIA [None]
  - ANGINA PECTORIS [None]
  - ANXIETY [None]
  - BACK PAIN [None]
  - BLISTER [None]
  - BLOOD CHOLESTEROL INCREASED [None]
  - BLOOD PRESSURE INCREASED [None]
  - CARDIAC MURMUR [None]
  - CHEST DISCOMFORT [None]
  - CONTUSION [None]
  - CONVULSION [None]
  - CORONARY ARTERY DISEASE [None]
  - DEPRESSION [None]
  - EYE DISORDER [None]
  - HEADACHE [None]
  - HEART RATE INCREASED [None]
  - HYPERCHOLESTEROLAEMIA [None]
  - HYPOAESTHESIA [None]
  - JOINT SWELLING [None]
  - KIDNEY INFECTION [None]
  - MYOCARDIAL INFARCTION [None]
  - NAUSEA [None]
  - NEPHROLITHIASIS [None]
  - PAIN IN EXTREMITY [None]
  - PAIN IN JAW [None]
  - PALPITATIONS [None]
  - PHLEBITIS [None]
  - PYREXIA [None]
  - RASH [None]
  - RECTAL HAEMORRHAGE [None]
  - RENAL DISORDER [None]
  - STRESS [None]
  - TACHYCARDIA [None]
  - UPPER RESPIRATORY TRACT INFECTION [None]
  - URINARY TRACT INFECTION [None]
  - VASCULITIS [None]
  - WEIGHT DECREASED [None]
